FAERS Safety Report 9204204 (Version 4)
Quarter: 2014Q2

REPORT INFORMATION
  Report Type: Report from Study
  Country: JP (occurrence: JP)
  Receive Date: 20130402
  Receipt Date: 20140514
  Transmission Date: 20141212
  Serious: Yes (Hospitalization)
  Sender: FDA-Public Use
  Company Number: JP-PFIZER INC-2013018476

PATIENT
  Age: 76 Year
  Sex: Male
  Weight: 61.5 kg

DRUGS (6)
  1. CRIZOTINIB [Suspect]
     Indication: NON-SMALL CELL LUNG CANCER
     Dosage: 250 MG, 2X/DAY
     Route: 048
     Dates: start: 20121219, end: 20130102
  2. NORVASC [Concomitant]
     Dosage: 5 MG, 1X/DAY
     Route: 048
  3. TENORMIN [Concomitant]
     Dosage: 25 MG, 1X/DAY
     Route: 048
  4. VOLTAREN [Concomitant]
     Dosage: 25 MG, 3X/DAY
     Route: 048
  5. MUCOSTA [Concomitant]
     Dosage: 100 MG, 3X/DAY
     Route: 048
  6. CEREKINON [Concomitant]
     Dosage: 100 MG, 3X/DAY
     Route: 048
     Dates: start: 20121226

REACTIONS (2)
  - Hepatic function abnormal [Recovered/Resolved]
  - Erythema [Recovered/Resolved]
